FAERS Safety Report 9838322 (Version 2)
Quarter: 2014Q3

REPORT INFORMATION
  Report Type: Spontaneous
  Country: US (occurrence: US)
  Receive Date: 20140123
  Receipt Date: 20140825
  Transmission Date: 20150326
  Serious: Yes (Hospitalization, Other)
  Sender: FDA-Public Use
  Company Number: US-009507513-1401USA009483

PATIENT
  Sex: Female

DRUGS (1)
  1. NUVARING [Suspect]
     Active Substance: ETHINYL ESTRADIOL\ETONOGESTREL
     Indication: OVARIAN CYST
     Dosage: UNK
     Route: 067
     Dates: start: 200801

REACTIONS (9)
  - Off label use [Unknown]
  - Limb operation [Unknown]
  - Rhinitis allergic [Unknown]
  - Bronchial hyperreactivity [Unknown]
  - Lung infection [Unknown]
  - Pneumonia [Unknown]
  - Hypertension [Unknown]
  - Radius fracture [Unknown]
  - Pulmonary embolism [Unknown]

NARRATIVE: CASE EVENT DATE: 200801
